FAERS Safety Report 13128645 (Version 3)
Quarter: 2017Q4

REPORT INFORMATION
  Report Type: Spontaneous
  Country: US (occurrence: US)
  Receive Date: 20170118
  Receipt Date: 20171112
  Transmission Date: 20180320
  Serious: Yes (Disabling)
  Sender: FDA-Public Use
  Company Number: US-TEVA-729975ACC

PATIENT
  Sex: Female

DRUGS (13)
  1. RANITIDINE. [Concomitant]
     Active Substance: RANITIDINE
  2. COPAXONE [Suspect]
     Active Substance: GLATIRAMER ACETATE
     Indication: MULTIPLE SCLEROSIS
     Route: 058
     Dates: start: 20140129
  3. EVISTA [Concomitant]
     Active Substance: RALOXIFENE HYDROCHLORIDE
  4. LEVOTHYROXINE. [Concomitant]
     Active Substance: LEVOTHYROXINE
  5. PANTOPRAZOLE [Concomitant]
     Active Substance: PANTOPRAZOLE
  6. OXYBUTYNIN. [Concomitant]
     Active Substance: OXYBUTYNIN CHLORIDE
  7. LATANOPROST SOL [Concomitant]
  8. AMLODIPINE [Concomitant]
     Active Substance: AMLODIPINE BESYLATE
  9. MONTELUKAST [Concomitant]
     Active Substance: MONTELUKAST SODIUM
  10. VESICARE [Concomitant]
     Active Substance: SOLIFENACIN SUCCINATE
  11. RALOXIFENE. [Concomitant]
     Active Substance: RALOXIFENE
  12. MECLIZINE [Concomitant]
     Active Substance: MECLIZINE HYDROCHLORIDE
  13. METFORMIN [Concomitant]
     Active Substance: METFORMIN HYDROCHLORIDE

REACTIONS (9)
  - Underdose [Unknown]
  - Skin irritation [Unknown]
  - Dizziness [Unknown]
  - Nuclear magnetic resonance imaging abnormal [Unknown]
  - Head discomfort [Unknown]
  - Feeling abnormal [Unknown]
  - Fall [Unknown]
  - Hearing aid user [Not Recovered/Not Resolved]
  - Vertigo [Not Recovered/Not Resolved]
